FAERS Safety Report 13372262 (Version 1)
Quarter: 2017Q1

REPORT INFORMATION
  Report Type: Spontaneous
  Country: US (occurrence: US)
  Receive Date: 20170324
  Receipt Date: 20170324
  Transmission Date: 20170429
  Serious: Yes (Other)
  Sender: FDA-Public Use
  Company Number: None

PATIENT
  Age: 77 Year
  Sex: Male
  Weight: 96.16 kg

DRUGS (20)
  1. ADCIRCA [Suspect]
     Active Substance: TADALAFIL
     Indication: PULMONARY HYPERTENSION
     Route: 048
     Dates: start: 20160313
  2. BUDESONIDE. [Concomitant]
     Active Substance: BUDESONIDE
  3. MULTIVITAMIN W/MINERALS [Concomitant]
     Active Substance: MINERALS\VITAMINS
  4. SIMVASTATIN. [Concomitant]
     Active Substance: SIMVASTATIN
  5. ASPIRIN. [Concomitant]
     Active Substance: ASPIRIN
  6. METRONIDAZOLE. [Concomitant]
     Active Substance: METRONIDAZOLE
  7. PAROXETINE HCL [Concomitant]
     Active Substance: PAROXETINE HYDROCHLORIDE
  8. TADALAFIL [Suspect]
     Active Substance: TADALAFIL
  9. BUPROPION HCL [Concomitant]
     Active Substance: BUPROPION HYDROCHLORIDE
  10. FLUTICASONE PROP [Concomitant]
  11. SIG ALBUTEROL [Concomitant]
  12. CHOLECALCIFEROL (VIT D3) [Concomitant]
  13. CARBAMIDE PEROXIDE [Concomitant]
     Active Substance: CARBAMIDE PEROXIDE
  14. SODIUM CHLORIDE. [Concomitant]
     Active Substance: SODIUM CHLORIDE
  15. TIOTROPIUM [Concomitant]
     Active Substance: TIOTROPIUM
  16. ARIPIPRAZOLE. [Concomitant]
     Active Substance: ARIPIPRAZOLE
  17. LORATADINE. [Concomitant]
     Active Substance: LORATADINE
  18. TAMSULOSIN HCL [Concomitant]
     Active Substance: TAMSULOSIN
  19. IBUPROFEN. [Concomitant]
     Active Substance: IBUPROFEN
  20. FINASTERIDE. [Concomitant]
     Active Substance: FINASTERIDE

REACTIONS (3)
  - Oxygen saturation decreased [None]
  - Gait disturbance [None]
  - Balance disorder [None]

NARRATIVE: CASE EVENT DATE: 20170323
